FAERS Safety Report 10094661 (Version 1)
Quarter: 2014Q2

REPORT INFORMATION
  Report Type: Spontaneous
  Country: US (occurrence: None)
  Receive Date: 20140411
  Receipt Date: 20140411
  Transmission Date: 20141212
  Serious: No
  Sender: FDA-Public Use
  Company Number: 2014US003010

PATIENT
  Age: 32 Year
  Sex: Female

DRUGS (1)
  1. ICLUSIG (PONATINIB) TABLET, 45MG [Suspect]
     Indication: LEUKAEMIA
     Dosage: QD, PO.
     Dates: start: 20130708

REACTIONS (2)
  - Exfoliative rash [None]
  - Rash [None]
